FAERS Safety Report 6330524-1 (Version None)
Quarter: 2009Q3

REPORT INFORMATION
  Report Type: 
  Country: None (occurrence: None)
  Receive Date: 20090827
  Receipt Date: 20080905
  Transmission Date: 20100115
  Serious: No
  Sender: FDA-Public Use
  Company Number: A0740339A

PATIENT
  Sex: Female

DRUGS (1)
  1. ZOVIRAX [Suspect]
     Indication: DRUG USE FOR UNKNOWN INDICATION
     Route: 061

REACTIONS (3)
  - BURNING SENSATION [None]
  - HYPOAESTHESIA ORAL [None]
  - PRODUCT QUALITY ISSUE [None]
